FAERS Safety Report 24615976 (Version 1)
Quarter: 2024Q4

REPORT INFORMATION
  Report Type: Spontaneous
  Country: GB (occurrence: GB)
  Receive Date: 20241113
  Receipt Date: 20241113
  Transmission Date: 20250115
  Serious: Yes (Other)
  Sender: TEVA
  Company Number: None

PATIENT
  Age: 98 Year
  Sex: Male

DRUGS (1)
  1. HALOPERIDOL [Suspect]
     Active Substance: HALOPERIDOL
     Route: 065

REACTIONS (2)
  - Medication error [Unknown]
  - Psychotic disorder [Recovered/Resolved with Sequelae]
